FAERS Safety Report 18299861 (Version 1)
Quarter: 2020Q3

REPORT INFORMATION
  Report Type: Spontaneous
  Country: US (occurrence: US)
  Receive Date: 20200922
  Receipt Date: 20200922
  Transmission Date: 20201103
  Serious: No
  Sender: FDA-Public Use
  Company Number: None

PATIENT
  Age: 22 Year
  Sex: Female
  Weight: 75.8 kg

DRUGS (1)
  1. VANCOMYCIN IN 0.9 % NACL [Suspect]
     Active Substance: VANCOMYCIN
     Indication: INFECTION
     Dosage: ?          OTHER FREQUENCY:ONCE;?
     Route: 042
     Dates: start: 20200904, end: 20200904

REACTIONS (6)
  - Nonspecific reaction [None]
  - Erythema [None]
  - Burning sensation [None]
  - Chest pain [None]
  - Urticaria [None]
  - Lip erythema [None]

NARRATIVE: CASE EVENT DATE: 20200904
